FAERS Safety Report 17891177 (Version 1)
Quarter: 2020Q2

REPORT INFORMATION
  Report Type: Spontaneous
  Country: US (occurrence: US)
  Receive Date: 20200612
  Receipt Date: 20200612
  Transmission Date: 20200714
  Serious: No
  Sender: FDA-Public Use
  Company Number: US-PERRIGO-19US016355

PATIENT
  Age: 77 Year
  Sex: Male
  Weight: 63.49 kg

DRUGS (3)
  1. MINOXIDIL. [Suspect]
     Active Substance: MINOXIDIL
     Indication: ALOPECIA
     Dosage: 1/2 CAPFUL, BID
     Route: 061
     Dates: start: 201905
  2. METAMUCIL [Concomitant]
     Active Substance: PLANTAGO SEED
     Indication: BLOOD CHOLESTEROL INCREASED
     Dosage: UNK
     Route: 048
     Dates: start: 201905
  3. RETIN-A [Concomitant]
     Active Substance: TRETINOIN
     Indication: PROPHYLAXIS AGAINST SOLAR RADIATION
     Dosage: UNK
     Route: 061
     Dates: start: 2009

REACTIONS (1)
  - Hair colour changes [Recovering/Resolving]

NARRATIVE: CASE EVENT DATE: 201907
